FAERS Safety Report 8887818 (Version 3)
Quarter: 2013Q1

REPORT INFORMATION
  Report Type: Spontaneous
  Country: US (occurrence: US)
  Receive Date: 20121106
  Receipt Date: 20130211
  Transmission Date: 20140127
  Serious: Yes (Death)
  Sender: FDA-Public Use
  Company Number: US-AMGEN-USASP2012069814

PATIENT
  Sex: Female
  Weight: 90.25 kg

DRUGS (11)
  1. ENBREL [Suspect]
     Indication: RHEUMATOID ARTHRITIS
     Dosage: 25 MG, 2 TIMES/WK
     Route: 058
     Dates: start: 2010, end: 2012
  2. FAMOTIDINE [Concomitant]
     Dosage: UNK
  3. ZOLPIDEM [Concomitant]
     Dosage: UNK
  4. AMLODIPINE [Concomitant]
     Dosage: UNK
  5. METHOTREXATE [Concomitant]
     Dosage: 7.5 MG, 2 TIMES/WK
     Route: 048
  6. KLOR-CON [Concomitant]
     Dosage: UNK, UNK
  7. ANASTROZOLE [Concomitant]
     Indication: BREAST CANCER
     Dosage: 1 MG, QD
     Route: 048
  8. ATENOLOL [Concomitant]
     Indication: HYPERTENSION
     Dosage: 50 MG, QD
     Route: 048
  9. CITALOPRAM [Concomitant]
     Indication: DEPRESSION
     Dosage: 20 MG, QD
     Route: 048
  10. CLONAZEPAM [Concomitant]
     Indication: ANXIETY
     Dosage: 05 MG, QD
     Route: 048
  11. FOLIC ACID [Concomitant]
     Dosage: 1 MG, QD
     Route: 048

REACTIONS (1)
  - Death [Fatal]
